FAERS Safety Report 7691270-5 (Version None)
Quarter: 2011Q3

REPORT INFORMATION
  Report Type: 
  Country: None (occurrence: None)
  Receive Date: 20110815
  Receipt Date: 20110720
  Transmission Date: 20111222
  Serious: Yes (Other)
  Sender: FDA-Public Use
  Company Number: 2010SE03405

PATIENT
  Age: 54 Year
  Sex: Male

DRUGS (4)
  1. GANCICLOVIR [Concomitant]
  2. VALIXA (VALGANCICLOVIR HYDROCHLORIDE) [Concomitant]
  3. FOSCAVIR [Suspect]
     Indication: CYTOMEGALOVIRUS CHORIORETINITIS
     Dosage: 6000 MG DAILY / 5760 MG DAILY / 3600 MG QOD, INTRAVENOUS DRIP
     Route: 041
     Dates: end: 20100222
  4. FOSCAVIR [Suspect]
     Indication: CYTOMEGALOVIRUS CHORIORETINITIS
     Dosage: 6000 MG DAILY / 5760 MG DAILY / 3600 MG QOD, INTRAVENOUS DRIP
     Route: 041
     Dates: start: 20100119

REACTIONS (3)
  - RENAL IMPAIRMENT [None]
  - CYTOMEGALOVIRUS INFECTION [None]
  - HYPOGLYCAEMIC SEIZURE [None]
